FAERS Safety Report 9648249 (Version 1)
Quarter: 2013Q4

REPORT INFORMATION
  Report Type: Report from Study
  Country: IN (occurrence: IN)
  Receive Date: 20131028
  Receipt Date: 20131028
  Transmission Date: 20140711
  Serious: Yes (Hospitalization)
  Sender: FDA-Public Use
  Company Number: IN-ROCHE-1293907

PATIENT
  Age: 64 Year
  Sex: Female

DRUGS (2)
  1. EXXURA [Suspect]
     Indication: HEPATITIS C
     Dosage: ONGOING
     Route: 058
     Dates: start: 20130820
  2. COPEGUS [Suspect]
     Indication: HEPATITIS C
     Route: 048
     Dates: start: 20130820, end: 20131012

REACTIONS (2)
  - Ammonia increased [Recovered/Resolved]
  - Loss of consciousness [Recovered/Resolved]
